FAERS Safety Report 8065149-3 (Version None)
Quarter: 2012Q1

REPORT INFORMATION
  Report Type: 
  Country: None (occurrence: None)
  Receive Date: 20120117
  Receipt Date: 20120103
  Transmission Date: 20120608
  Serious: Yes (Other)
  Sender: FDA-Public Use
  Company Number: 128258

PATIENT
  Sex: Female
  Weight: 64.4108 kg

DRUGS (3)
  1. XANAX [Concomitant]
  2. BUTORPHANOL TARATRATE [Suspect]
     Indication: HEADACHE
     Dosage: 4 MG (2ML) SQ X 1 DOSE
     Dates: start: 20120103
  3. METOPROLOL TARTRATE [Concomitant]

REACTIONS (4)
  - NAUSEA [None]
  - DIZZINESS [None]
  - EXPIRED DRUG ADMINISTERED [None]
  - MEDICATION ERROR [None]
